FAERS Safety Report 13887166 (Version 1)
Quarter: 2017Q3

REPORT INFORMATION
  Report Type: Spontaneous
  Country: US (occurrence: US)
  Receive Date: 20170821
  Receipt Date: 20170821
  Transmission Date: 20171127
  Serious: No
  Sender: FDA-Public Use
  Company Number: US-ROCHE-767172

PATIENT
  Sex: Female
  Weight: 75.3 kg

DRUGS (9)
  1. CELEBREX [Concomitant]
     Active Substance: CELECOXIB
  2. ACTEMRA [Suspect]
     Active Substance: TOCILIZUMAB
     Route: 042
     Dates: start: 201103, end: 201103
  3. GABAPENTIN. [Concomitant]
     Active Substance: GABAPENTIN
  4. ADDERALL [Concomitant]
     Active Substance: AMPHETAMINE ASPARTATE\AMPHETAMINE SULFATE\DEXTROAMPHETAMINE SACCHARATE\DEXTROAMPHETAMINE SULFATE
  5. ACTEMRA [Suspect]
     Active Substance: TOCILIZUMAB
     Route: 042
  6. MTX [Concomitant]
     Active Substance: METHOTREXATE SODIUM
  7. ACTEMRA [Suspect]
     Active Substance: TOCILIZUMAB
     Indication: ANKYLOSING SPONDYLITIS
     Dosage: FORM: INFUSION?04 INFUSIONS
     Route: 042
  8. ACTEMRA [Suspect]
     Active Substance: TOCILIZUMAB
     Route: 042
     Dates: start: 201102, end: 201102
  9. LYRICA [Concomitant]
     Active Substance: PREGABALIN

REACTIONS (7)
  - Haemorrhage subcutaneous [Unknown]
  - Infected skin ulcer [Unknown]
  - Bronchitis [Unknown]
  - Blood count abnormal [Unknown]
  - Diabetes mellitus inadequate control [Not Recovered/Not Resolved]
  - Oedema peripheral [Unknown]
  - Furuncle [Not Recovered/Not Resolved]
